FAERS Safety Report 10225027 (Version 1)
Quarter: 2014Q2

REPORT INFORMATION
  Report Type: Spontaneous
  Country: US (occurrence: US)
  Receive Date: 20140609
  Receipt Date: 20140609
  Transmission Date: 20141212
  Serious: No
  Sender: FDA-Public Use
  Company Number: US-B.I. PHARMACEUTICALS,INC./RIDGEFIELD-2014-BI-24034BP

PATIENT
  Age: 81 Year
  Sex: Female
  Weight: 61 kg

DRUGS (13)
  1. PRADAXA [Suspect]
     Indication: ATRIAL FIBRILLATION
     Dosage: 300 MG
     Route: 048
     Dates: start: 20140516, end: 20140523
  2. PLAVIX [Concomitant]
     Indication: TRANSIENT ISCHAEMIC ATTACK
     Dosage: 75 MG
     Route: 048
  3. GLIPIZIDE [Concomitant]
     Indication: TYPE 2 DIABETES MELLITUS
     Dosage: 10 MG
     Route: 048
  4. GLUCOPHAGE [Concomitant]
     Indication: TYPE 2 DIABETES MELLITUS
     Dosage: 2000 MG
     Route: 048
  5. ACTOS [Concomitant]
     Indication: TYPE 2 DIABETES MELLITUS
     Dosage: 15 MG
     Route: 048
  6. ZOCOR [Concomitant]
     Indication: HYPERTENSION
     Dosage: 10 MG
     Route: 048
  7. COZAAR [Concomitant]
     Indication: HYPERTENSION
     Dosage: 100 MG
     Route: 048
  8. LOPRESSOR [Concomitant]
     Indication: HYPERTENSION
     Dosage: 100 MG
     Route: 048
  9. AMLODIPINE BESYLATE [Concomitant]
     Indication: HYPERTENSION
     Dosage: 10 MG
     Route: 048
  10. LASIX [Concomitant]
     Indication: FLUID RETENTION
     Dosage: 40 MG
     Route: 048
  11. KLOR CON [Concomitant]
     Dosage: 20 MEQ
     Route: 048
  12. METOPROLOL [Concomitant]
     Dosage: 20 MG
     Route: 048
  13. TRANS-Q [Concomitant]
     Indication: STRESS
     Dosage: 2 ANZ
     Route: 048

REACTIONS (6)
  - Back pain [Recovered/Resolved]
  - Flatulence [Not Recovered/Not Resolved]
  - Chest pain [Recovered/Resolved]
  - Dysphagia [Recovered/Resolved]
  - Abdominal discomfort [Not Recovered/Not Resolved]
  - Abdominal pain upper [Recovered/Resolved]
